FAERS Safety Report 6725129-4 (Version None)
Quarter: 2010Q2

REPORT INFORMATION
  Report Type: 
  Country: None (occurrence: None)
  Receive Date: 20100514
  Receipt Date: 20100503
  Transmission Date: 20101027
  Serious: Yes (Hospitalization)
  Sender: FDA-Public Use
  Company Number: FR-BAYER-201024706GPV

PATIENT
  Age: 68 Year
  Sex: Male

DRUGS (3)
  1. ULTRAVIST 370 [Suspect]
     Indication: ARTHROSCOPY
     Route: 014
     Dates: start: 20091202, end: 20091202
  2. PLAVIX [Concomitant]
     Dates: start: 20081101
  3. ACETAMINOPHEN [Concomitant]
     Indication: PAIN IN EXTREMITY

REACTIONS (5)
  - ARTHRITIS [None]
  - ARTHROPATHY [None]
  - FEELING HOT [None]
  - PAIN [None]
  - PYREXIA [None]
